FAERS Safety Report 19467485 (Version 1)
Quarter: 2021Q2

REPORT INFORMATION
  Report Type: Spontaneous
  Country: US (occurrence: US)
  Receive Date: 20210628
  Receipt Date: 20210628
  Transmission Date: 20210717
  Serious: Yes (Other)
  Sender: FDA-Public Use
  Company Number: None

PATIENT
  Age: 33 Year
  Sex: Female

DRUGS (1)
  1. SQUALANE ZINC SHEER MINERAL SUNSCREEN [Suspect]
     Active Substance: ZINC OXIDE
     Indication: PROPHYLAXIS AGAINST SOLAR RADIATION
     Dosage: ?          OTHER FREQUENCY:EVERY OTHER DAY;?
     Route: 061
     Dates: start: 20210520, end: 20210626

REACTIONS (2)
  - Inflammation [None]
  - Hypersensitivity [None]

NARRATIVE: CASE EVENT DATE: 20210626
